FAERS Safety Report 6626033-2 (Version None)
Quarter: 2010Q1

REPORT INFORMATION
  Report Type: 
  Country: None (occurrence: None)
  Receive Date: 20100309
  Receipt Date: 20100309
  Transmission Date: 20100710
  Serious: Yes (Hospitalization)
  Sender: FDA-Public Use
  Company Number: None

PATIENT
  Age: 65 Year
  Sex: Male
  Weight: 71 kg

DRUGS (2)
  1. FLUDARABINE PHOSPHATE [Suspect]
     Dosage: 42 MG EVERY DAY IV
     Route: 042
     Dates: start: 20090921, end: 20091006
  2. RITUXIMAB [Suspect]
     Dosage: 840 MG ONCE IV
     Route: 042
     Dates: start: 20090921, end: 20090921

REACTIONS (4)
  - ABDOMINAL PAIN [None]
  - FATIGUE [None]
  - NIGHT SWEATS [None]
  - SMALL INTESTINAL OBSTRUCTION [None]
